FAERS Safety Report 7491232-7 (Version None)
Quarter: 2011Q2

REPORT INFORMATION
  Report Type: 
  Country: None (occurrence: None)
  Receive Date: 20110519
  Receipt Date: 20110511
  Transmission Date: 20111010
  Serious: Yes (Hospitalization)
  Sender: FDA-Public Use
  Company Number: A0789758A

PATIENT
  Age: 50 Year
  Sex: Female
  Weight: 104.5 kg

DRUGS (5)
  1. AVANDIA [Suspect]
     Indication: DIABETES MELLITUS
     Route: 048
  2. AVANDAMET [Suspect]
     Route: 048
     Dates: start: 20040624, end: 20070701
  3. ENALAPRIL MALEATE [Concomitant]
  4. ZOCOR [Concomitant]
  5. GLUCOPHAGE [Concomitant]

REACTIONS (2)
  - MYOCARDIAL INFARCTION [None]
  - MYOCARDIAL ISCHAEMIA [None]
